FAERS Safety Report 8173679-9 (Version None)
Quarter: 2012Q1

REPORT INFORMATION
  Report Type: 
  Country: None (occurrence: None)
  Receive Date: 20120227
  Receipt Date: 20120210
  Transmission Date: 20120608
  Serious: Yes (Hospitalization, Disabling, Other)
  Sender: FDA-Public Use
  Company Number: 2008AL010869

PATIENT
  Age: 38 Year
  Sex: Male
  Weight: 95.709 kg

DRUGS (33)
  1. DIGOXIN [Suspect]
     Indication: PRODUCT USED FOR UNKNOWN INDICATION
     Dosage: 0.25 MG, QD, PO
     Route: 048
     Dates: start: 19880302, end: 20090612
  2. METOCLOPRAMIDE [Concomitant]
  3. TYLENOL W/ CODEINE NO. 3 [Concomitant]
  4. AMLODIPINE [Concomitant]
  5. PERCOCET [Concomitant]
  6. TRIAZOLAM [Concomitant]
  7. IBUPROFEN [Concomitant]
  8. CADUET [Concomitant]
  9. ROSUVASTATIN [Concomitant]
  10. DYAZIDE [Concomitant]
  11. OXYCODONE HCL AND ACETAMINOPHEN [Concomitant]
  12. FOLIC ACID [Concomitant]
  13. PRAZOLARA [Concomitant]
  14. NIASPAN [Concomitant]
  15. CRESTOR [Concomitant]
  16. LOTREL [Concomitant]
  17. ENOXAPARIN [Concomitant]
  18. CELECOXIB [Concomitant]
  19. THIAMINE HYDROCHLORIDE [Concomitant]
  20. LOVENOX [Concomitant]
  21. PHENOBARBITAL TAB [Concomitant]
  22. ASPIRIN [Concomitant]
  23. COREG [Concomitant]
  24. CELEBREX [Concomitant]
  25. ...HENUTEK [Concomitant]
  26. PHENYTOIN SODIUM [Concomitant]
  27. PRAVACHOL [Concomitant]
  28. DILANTIN [Concomitant]
  29. ALPHARMA [Concomitant]
  30. EZETIMIBE [Concomitant]
  31. NAPROSYN [Concomitant]
  32. ALTACE [Concomitant]
  33. ZETIA [Concomitant]

REACTIONS (51)
  - CRANIOCEREBRAL INJURY [None]
  - PROSTATITIS [None]
  - ALCOHOL POISONING [None]
  - VISUAL FIELD DEFECT [None]
  - MULTIPLE INJURIES [None]
  - URINARY RETENTION [None]
  - SUBARACHNOID HAEMORRHAGE [None]
  - PERSONALITY DISORDER [None]
  - DIZZINESS [None]
  - MUSCULOSKELETAL STIFFNESS [None]
  - ERECTILE DYSFUNCTION [None]
  - ATELECTASIS [None]
  - EXCORIATION [None]
  - MENTAL DISABILITY [None]
  - SOMNOLENCE [None]
  - ELECTROCARDIOGRAM T WAVE ABNORMAL [None]
  - BUNDLE BRANCH BLOCK RIGHT [None]
  - ECONOMIC PROBLEM [None]
  - ALCOHOL ABUSE [None]
  - THROMBOCYTOPENIA [None]
  - ATRIAL FIBRILLATION [None]
  - OSTEONECROSIS [None]
  - LUNG INFILTRATION [None]
  - PAIN [None]
  - ANXIETY [None]
  - HIP ARTHROPLASTY [None]
  - ORTHOSIS USER [None]
  - HEAD INJURY [None]
  - NERVOUSNESS [None]
  - RESPIRATORY FAILURE [None]
  - OEDEMA PERIPHERAL [None]
  - COLONIC POLYP [None]
  - PERONEAL NERVE PALSY [None]
  - NEUROPATHY PERIPHERAL [None]
  - HYDROCEPHALUS [None]
  - CONVULSION [None]
  - FALL [None]
  - SUBDURAL HAEMATOMA [None]
  - ARTHRALGIA [None]
  - ONYCHOMYCOSIS [None]
  - OSTEOARTHRITIS [None]
  - ENCEPHALOMALACIA [None]
  - ELECTROCARDIOGRAM ST SEGMENT DEPRESSION [None]
  - MYOCARDIAL ISCHAEMIA [None]
  - ATAXIA [None]
  - ABASIA [None]
  - APHASIA [None]
  - HYPERLIPIDAEMIA [None]
  - EAR DISORDER [None]
  - HYPOAESTHESIA [None]
  - DRUG LEVEL DECREASED [None]
